FAERS Safety Report 6402596-7 (Version None)
Quarter: 2009Q4

REPORT INFORMATION
  Report Type: 
  Country: None (occurrence: None)
  Receive Date: 20091009
  Receipt Date: 20090930
  Transmission Date: 20100525
  Serious: No
  Sender: FDA-Public Use
  Company Number: ADR34822009

PATIENT
  Age: 29 Year
  Sex: Female

DRUGS (3)
  1. CIPROFLOXACIN [Suspect]
     Indication: PSEUDOMONAS INFECTION
     Dosage: 800 MG; INTRAVENOUS
     Route: 042
  2. ENOXAPARIN SODIUM [Concomitant]
  3. TOBRAMYCIN [Concomitant]

REACTIONS (3)
  - ACTIVATED PARTIAL THROMBOPLASTIN TIME PROLONGED [None]
  - COAGULOPATHY [None]
  - INTERNATIONAL NORMALISED RATIO INCREASED [None]
